FAERS Safety Report 24639429 (Version 1)
Quarter: 2024Q4

REPORT INFORMATION
  Report Type: Spontaneous
  Country: US (occurrence: US)
  Receive Date: 20241119
  Receipt Date: 20241119
  Transmission Date: 20250114
  Serious: No
  Sender: NEUROCRINE BIOSCIENCES
  Company Number: US-NEUROCRINE BIOSCIENCES INC.-2024NBI11159

PATIENT
  Age: 44 Year
  Sex: Male

DRUGS (3)
  1. INGREZZA SPRINKLE [Suspect]
     Active Substance: VALBENAZINE DITOSYLATE
     Indication: Product used for unknown indication
     Dosage: 40 MILLIGRAM
     Route: 065
  2. INGREZZA SPRINKLE [Suspect]
     Active Substance: VALBENAZINE DITOSYLATE
     Dosage: 60 MILLIGRAM
     Route: 065
  3. INGREZZA SPRINKLE [Suspect]
     Active Substance: VALBENAZINE DITOSYLATE
     Dosage: 40 MILLIGRAM
     Route: 065

REACTIONS (1)
  - Catatonia [Recovered/Resolved]
